FAERS Safety Report 11159860 (Version 1)
Quarter: 2015Q2

REPORT INFORMATION
  Report Type: Report from Study
  Country: DE (occurrence: DE)
  Receive Date: 20150603
  Receipt Date: 20150603
  Transmission Date: 20150821
  Serious: Yes (Death, Life-Threatening, Hospitalization, Other)
  Sender: FDA-Public Use
  Company Number: PHHY2013DE076349

PATIENT
  Sex: Male
  Weight: 80 kg

DRUGS (6)
  1. FORMOTEROL CT [Concomitant]
     Indication: CHRONIC OBSTRUCTIVE PULMONARY DISEASE
     Dosage: 24 UG, QD
     Route: 055
  2. FORADIL [Suspect]
     Active Substance: FORMOTEROL FUMARATE
     Indication: CHRONIC OBSTRUCTIVE PULMONARY DISEASE
     Dosage: 24 UG, QD
     Route: 055
  3. PANTOPRAZOL BETA [Concomitant]
     Indication: PROPHYLAXIS
     Dosage: 40 MG, QD
     Route: 048
  4. MIFLONIDE [Suspect]
     Active Substance: BUDESONIDE
     Indication: CHRONIC OBSTRUCTIVE PULMONARY DISEASE
     Dosage: 800 UG, QD
     Route: 055
  5. GLYCOPYRRONIUM BROMIDE [Suspect]
     Active Substance: GLYCOPYRRONIUM
     Indication: CHRONIC OBSTRUCTIVE PULMONARY DISEASE
     Dosage: 44 UG, QD
     Route: 055
     Dates: start: 20130311
  6. BERODUAL N [Concomitant]
     Active Substance: FENOTEROL HYDROBROMIDE\IPRATROPIUM BROMIDE
     Indication: CHRONIC OBSTRUCTIVE PULMONARY DISEASE
     Dosage: UNK, QD (AS NEEDED)
     Route: 055

REACTIONS (28)
  - Cardiac failure [Fatal]
  - Left ventricular dysfunction [Not Recovered/Not Resolved]
  - Fatigue [Recovered/Resolved]
  - Palpitations [Recovering/Resolving]
  - Atrioventricular block [Unknown]
  - Cardiac failure [Recovered/Resolved]
  - Pulmonary hypertension [Not Recovered/Not Resolved]
  - Candida infection [Unknown]
  - Electrocardiogram abnormal [Unknown]
  - Pulmonary congestion [Recovering/Resolving]
  - Dyspnoea [Recovering/Resolving]
  - Staphylococcal infection [Recovering/Resolving]
  - Pleural fibrosis [Not Recovered/Not Resolved]
  - Proteinuria [Not Recovered/Not Resolved]
  - Respiratory failure [Recovered/Resolved with Sequelae]
  - Oedema peripheral [Recovered/Resolved]
  - Cerebral microangiopathy [Not Recovered/Not Resolved]
  - Chronic obstructive pulmonary disease [Not Recovered/Not Resolved]
  - Infective exacerbation of chronic obstructive airways disease [Recovered/Resolved with Sequelae]
  - Atrial fibrillation [Recovered/Resolved]
  - Hypertension [Recovering/Resolving]
  - Pleural effusion [Recovering/Resolving]
  - Oliguria [Not Recovered/Not Resolved]
  - Hypokalaemia [Recovered/Resolved]
  - Diabetic nephropathy [Not Recovered/Not Resolved]
  - Hypercapnia [Recovered/Resolved]
  - Tachyarrhythmia [Recovered/Resolved]
  - Spinal osteoarthritis [Not Recovered/Not Resolved]

NARRATIVE: CASE EVENT DATE: 20130616
